FAERS Safety Report 7688566-X (Version None)
Quarter: 2011Q3

REPORT INFORMATION
  Report Type: 
  Country: None (occurrence: None)
  Receive Date: 20110817
  Receipt Date: 20110805
  Transmission Date: 20111222
  Serious: Yes (Hospitalization)
  Sender: FDA-Public Use
  Company Number: US-SANOFI-AVENTIS-2011SA044498

PATIENT
  Age: 67 Year
  Sex: Male
  Weight: 121 kg

DRUGS (15)
  1. NEBIVOLOL HCL [Concomitant]
     Route: 065
     Dates: end: 20100610
  2. DABIGATRAN [Concomitant]
     Route: 065
     Dates: end: 20110330
  3. LASIX [Concomitant]
  4. VALSARTAN [Concomitant]
     Route: 065
     Dates: end: 20110610
  5. ROSUVASTATIN [Concomitant]
     Route: 065
     Dates: end: 20110610
  6. DRONEDARONE HCL [Suspect]
     Indication: ATRIAL FIBRILLATION
     Route: 048
     Dates: start: 20110202
  7. NOVOLOG [Concomitant]
     Dosage: DOSE:35 UNIT(S)
  8. AMLODIPINE [Concomitant]
     Route: 065
     Dates: end: 20110610
  9. LISINOPRIL [Concomitant]
     Route: 048
  10. LANTUS [Concomitant]
     Dosage: DOSE:65 UNIT(S)
     Route: 065
  11. NSAID'S [Concomitant]
     Route: 065
     Dates: end: 20110606
  12. ISOSORBIDE MONONITRATE [Concomitant]
     Route: 065
     Dates: end: 20110610
  13. CLOPIDOGREL [Concomitant]
     Route: 065
     Dates: end: 20110606
  14. POTASSIUM CHLORIDE [Concomitant]
     Route: 048
  15. NEBIVOLOL HCL [Concomitant]
     Route: 048

REACTIONS (1)
  - GASTRIC ULCER HAEMORRHAGE [None]
